FAERS Safety Report 4709264-8 (Version None)
Quarter: 2005Q3

REPORT INFORMATION
  Report Type: 
  Country: None (occurrence: None)
  Receive Date: 20050705
  Receipt Date: 20050621
  Transmission Date: 20060218
  Serious: Yes (Other)
  Sender: FDA-Public Use
  Company Number: 2005090565

PATIENT
  Age: 43 Year
  Sex: Female

DRUGS (1)
  1. UNISOM [Suspect]
     Indication: SUICIDE ATTEMPT
     Dosage: 44 TABLETS ONCE, ORAL
     Route: 048
     Dates: start: 20050618, end: 20050618

REACTIONS (4)
  - DIZZINESS [None]
  - INTENTIONAL MISUSE [None]
  - OVERDOSE [None]
  - SUICIDE ATTEMPT [None]
